FAERS Safety Report 19131631 (Version 1)
Quarter: 2021Q2

REPORT INFORMATION
  Report Type: Other
  Country: CA (occurrence: CA)
  Receive Date: 20210414
  Receipt Date: 20210414
  Transmission Date: 20210717
  Serious: Yes (Hospitalization, Other)
  Sender: FDA-Public Use
  Company Number: CA-APOTEX-2021AP008655

PATIENT
  Age: 51 Year
  Sex: Male

DRUGS (1)
  1. METFORMIN [Suspect]
     Active Substance: METFORMIN HYDROCHLORIDE
     Indication: DIABETES MELLITUS
     Dosage: 1000 MILLIGRAM, BID
     Route: 048

REACTIONS (4)
  - Chemotherapy [Recovered/Resolved with Sequelae]
  - Intestinal resection [Recovered/Resolved with Sequelae]
  - Appendix cancer [Recovered/Resolved with Sequelae]
  - Surgery [Recovered/Resolved with Sequelae]
